FAERS Safety Report 9110033 (Version 1)
Quarter: 2013Q1

REPORT INFORMATION
  Report Type: Spontaneous
  Country: US (occurrence: US)
  Receive Date: 20130222
  Receipt Date: 20130222
  Transmission Date: 20140127
  Serious: Yes (Other)
  Sender: FDA-Public Use
  Company Number: US-PFIZER INC-2013065376

PATIENT
  Age: 68 Year
  Sex: Female
  Weight: 77.1 kg

DRUGS (5)
  1. NORVASC [Suspect]
     Indication: HYPERTENSION
     Dosage: 5 MG, DAILY
  2. LIPITOR [Suspect]
     Indication: HYPERTENSION
     Dosage: 10 MG, DAILY
  3. ACCUPRIL [Suspect]
     Indication: HYPERTENSION
     Dosage: 20 MG, DAILY
  4. ATENOLOL [Concomitant]
     Indication: HYPERTENSION
     Dosage: 50 MG, DAILY
  5. CLOPIDOGREL BISULFATE [Concomitant]
     Indication: HYPERTENSION
     Dosage: 75 MG, 3X/WEEK

REACTIONS (4)
  - Abasia [Recovering/Resolving]
  - Epistaxis [Recovering/Resolving]
  - Malaise [Recovering/Resolving]
  - Influenza [Recovering/Resolving]
